FAERS Safety Report 5830359-X (Version None)
Quarter: 2008Q3

REPORT INFORMATION
  Report Type: 
  Country: None (occurrence: None)
  Receive Date: 20080801
  Receipt Date: 20080721
  Transmission Date: 20090109
  Serious: Yes (Other)
  Sender: FDA-Public Use
  Company Number: BR-ROCHE-577413

PATIENT
  Age: 34 Year
  Sex: Female
  Weight: 47 kg

DRUGS (5)
  1. RIVOTRIL [Suspect]
     Indication: INSOMNIA
     Dosage: STRENGTH 2 MG
     Route: 048
     Dates: start: 19990101, end: 20080401
  2. RIVOTRIL [Suspect]
     Dosage: STRENGTH 2.5 MG
     Route: 048
     Dates: start: 20080401, end: 20080101
  3. RIVOTRIL [Suspect]
     Dosage: STRENGTH 0.5 MG
     Route: 048
     Dates: start: 20080101, end: 20080710
  4. RIVOTRIL [Suspect]
     Dosage: STRENGTH 2 MG
     Route: 048
     Dates: start: 20080716
  5. DORMONID [Concomitant]
     Dosage: AS NEEDED
     Route: 048
     Dates: end: 20080710

REACTIONS (10)
  - APHASIA [None]
  - BIPOLAR DISORDER [None]
  - HYPOPHAGIA [None]
  - ILL-DEFINED DISORDER [None]
  - INSOMNIA [None]
  - NECK PAIN [None]
  - SOMNOLENCE [None]
  - TREMOR [None]
  - WEIGHT DECREASED [None]
  - WITHDRAWAL SYNDROME [None]
